FAERS Safety Report 8057456 (Version 4)
Quarter: 2014Q1

REPORT INFORMATION
  Report Type: Spontaneous
  Country: US (occurrence: US)
  Receive Date: 20110727
  Receipt Date: 20140303
  Transmission Date: 20141002
  Serious: Yes (Other)
  Sender: FDA-Public Use
  Company Number: PHEH2011US00510

PATIENT
  Sex: Male

DRUGS (2)
  1. AREDIA [Suspect]
     Indication: OSTEOPOROSIS
  2. VASOTEC [Concomitant]
     Dosage: 10 MG
     Route: 048

REACTIONS (6)
  - Prostate cancer metastatic [Unknown]
  - Retroperitoneal lymphadenopathy [Unknown]
  - Foot fracture [Unknown]
  - Fatigue [Unknown]
  - Arthralgia [Unknown]
  - Nasopharyngitis [Unknown]
